FAERS Safety Report 10310543 (Version 2)
Quarter: 2014Q3

REPORT INFORMATION
  Report Type: Spontaneous
  Country: US (occurrence: US)
  Receive Date: 20140717
  Receipt Date: 20140717
  Transmission Date: 20150326
  Serious: Yes (Hospitalization, Other)
  Sender: FDA-Public Use
  Company Number: US-009507513-2010SP062541

PATIENT
  Sex: Female
  Weight: 90.72 kg

DRUGS (1)
  1. NUVARING [Suspect]
     Active Substance: ETHINYL ESTRADIOL\ETONOGESTREL
     Indication: CONTRACEPTION
     Route: 067
     Dates: start: 200712, end: 200811

REACTIONS (6)
  - Left ventricular hypertrophy [Unknown]
  - Hypothyroidism [Unknown]
  - Convulsion [Recovered/Resolved]
  - Hypertensive heart disease [Unknown]
  - Cerebrovascular accident [Recovering/Resolving]
  - Mitral valve incompetence [Unknown]

NARRATIVE: CASE EVENT DATE: 20081226
